FAERS Safety Report 8897541 (Version 1)
Quarter: 2012Q4

REPORT INFORMATION
  Report Type: 
  Country: IT (occurrence: None)
  Receive Date: 20121106
  Receipt Date: 20121106
  Transmission Date: 20130627
  Serious: Yes (Hospitalization)
  Sender: FDA-Public Use
  Company Number: DSM-2012-01171

PATIENT
  Age: 89 Year
  Sex: Female

DRUGS (9)
  1. OLMESARTAN MEDOXOMIL [Suspect]
     Indication: HYPERTENSION ARTERIAL
     Route: 048
     Dates: start: 20100101, end: 20120928
  2. LASIX (FUROSEMIDE) [Suspect]
     Indication: CHRONIC RENAL FAILURE
     Dosage: (25 mg,2 in 1 D)
     Route: 048
     Dates: start: 20100101, end: 20120928
  3. LASIX (FUROSEMIDE) [Suspect]
     Indication: CHRONIC RENAL FAILURE
     Dosage: (25 mg,1 in 1 D)
     Route: 048
  4. SIMVASTATINA (SIMVASTATIN) [Concomitant]
  5. ARANESP (DARBEPOETIN ALFA) [Concomitant]
  6. PANTORC (PANTOPRAZOLE SODIUM) [Concomitant]
  7. STILNOX (ZOLPIDEM TARTRATE) [Concomitant]
  8. CARDURA (DOXAZOSIN MESILATE) [Concomitant]
  9. TIKLID (TICLOPIDINE HYDROCHLORIDE) [Concomitant]

REACTIONS (5)
  - Blood potassium increased [None]
  - Blood sodium decreased [None]
  - Loss of consciousness [None]
  - Renal failure acute [None]
  - Bradyphrenia [None]
